FAERS Safety Report 7322974-1 (Version None)
Quarter: 2011Q1

REPORT INFORMATION
  Report Type: 
  Country: None (occurrence: None)
  Receive Date: 20110301
  Receipt Date: 20110218
  Transmission Date: 20110831
  Serious: Yes (Other)
  Sender: FDA-Public Use
  Company Number: PHHY2011CN13062

PATIENT

DRUGS (1)
  1. VOLTAREN [Suspect]
     Dosage: UNK
     Route: 048

REACTIONS (2)
  - HEARING IMPAIRED [None]
  - DEAFNESS [None]
